FAERS Safety Report 4565872-9 (Version None)
Quarter: 2005Q1

REPORT INFORMATION
  Report Type: 
  Country: None (occurrence: None)
  Receive Date: 20050128
  Receipt Date: 20050113
  Transmission Date: 20050727
  Serious: Yes (Death)
  Sender: FDA-Public Use
  Company Number: MEDI-0002743

PATIENT
  Age: 4 Month
  Sex: Female

DRUGS (1)
  1. SYNAGIS [Suspect]
     Dosage: 1 IN 30 D, INTRAVENOUS
     Route: 042
     Dates: start: 20050101, end: 20050101

REACTIONS (1)
  - SEPSIS [None]
